FAERS Safety Report 4785274-X (Version None)
Quarter: 2005Q3

REPORT INFORMATION
  Report Type: 
  Country: None (occurrence: None)
  Receive Date: 20050929
  Receipt Date: 20050916
  Transmission Date: 20060218
  Serious: Yes (Death, Hospitalization)
  Sender: FDA-Public Use
  Company Number: 05GER0185

PATIENT
  Sex: Male

DRUGS (4)
  1. AGGRASTAT [Suspect]
     Indication: ACUTE CORONARY SYNDROME
     Dosage: 12 UG/KG/BOLUS; 0.1UG/KG/MIN MAINTENCE
     Dates: start: 20050621, end: 20050622
  2. BIVALIRUDIN (BIVALIRUDIN) (INJECTION) [Suspect]
     Indication: ACUTE CORONARY SYNDROME
     Dosage: 6 MG BOLUS; 375 MG (13ML/H MAINTENANCE INFUSION)
     Dates: start: 20050621, end: 20050621
  3. ASPIRIN [Suspect]
     Indication: THROMBOSIS PROPHYLAXIS
     Dosage: 100 MG
     Dates: start: 20050621
  4. CLOPIDOGREL BISULFATE [Suspect]
     Indication: THROMBOSIS PROPHYLAXIS
     Dosage: 75 MG
     Dates: start: 20050621

REACTIONS (6)
  - FALL [None]
  - HAEMOTHORAX [None]
  - PERICARDIAL EFFUSION [None]
  - PERICARDITIS [None]
  - PLEURAL HAEMORRHAGE [None]
  - POST PROCEDURAL COMPLICATION [None]
